FAERS Safety Report 19268146 (Version 1)
Quarter: 2021Q2

REPORT INFORMATION
  Report Type: Spontaneous
  Country: US (occurrence: US)
  Receive Date: 20210518
  Receipt Date: 20210518
  Transmission Date: 20210717
  Serious: No
  Sender: FDA-Public Use
  Company Number: US-APOTEX-2021AP008882

PATIENT
  Age: 12 Year
  Sex: Male

DRUGS (4)
  1. DESMOPRESSIN [Concomitant]
     Active Substance: DESMOPRESSIN
     Indication: ENURESIS
     Dosage: 0.2 MILLIGRAM, Q.H.S. (1 TABLET)
     Route: 065
  2. GUANFACINE EXTENDED RELEASE TABLET [Suspect]
     Active Substance: GUANFACINE
     Indication: ATTENTION DEFICIT HYPERACTIVITY DISORDER
     Dosage: 6 MILLIGRAM, Q.H.S. (4MG 1 TABLET AND 2MG 1 TABLET BOTH IN THE EVENING)
     Route: 065
  3. ADDERALL [Concomitant]
     Active Substance: AMPHETAMINE ASPARTATE\AMPHETAMINE SULFATE\DEXTROAMPHETAMINE SACCHARATE\DEXTROAMPHETAMINE SULFATE
     Indication: ATTENTION DEFICIT HYPERACTIVITY DISORDER
     Dosage: 30 MILLIGRAM, QD (1 CAPSULE)
     Route: 065
  4. OXYBUTYNIN. [Concomitant]
     Active Substance: OXYBUTYNIN CHLORIDE
     Indication: ENURESIS
     Dosage: 5 MILLIGRAM, Q.H.S. (1 TABLET)
     Route: 065

REACTIONS (4)
  - Aggression [Recovering/Resolving]
  - Fatigue [Not Recovered/Not Resolved]
  - Recalled product administered [Unknown]
  - Dizziness [Not Recovered/Not Resolved]
